FAERS Safety Report 7939318-4 (Version None)
Quarter: 2011Q4

REPORT INFORMATION
  Report Type: 
  Country: None (occurrence: None)
  Receive Date: 20111125
  Receipt Date: 20110518
  Transmission Date: 20120403
  Serious: Yes (Death, Hospitalization)
  Sender: FDA-Public Use
  Company Number: FR-BAYER-2011-042313

PATIENT
  Age: 47 Year
  Sex: Male

DRUGS (6)
  1. NEXAVAR [Interacting]
     Dosage: 200 MG, QD
  2. RITONAVIR [Interacting]
     Indication: HIV INFECTION
  3. LAMIVUDINE(PEPFAR) [Interacting]
     Indication: HEPATITIS B
  4. ATAZANAVIR [Interacting]
     Indication: HIV INFECTION
  5. NEXAVAR [Suspect]
     Indication: HEPATIC NEOPLASM MALIGNANT
     Dosage: 400 MG, BID
  6. LAMIVUDINE(PEPFAR) [Interacting]
     Indication: HIV INFECTION

REACTIONS (11)
  - ABDOMINAL PAIN [None]
  - BILIRUBIN CONJUGATED INCREASED [None]
  - DECREASED APPETITE [None]
  - ASPARTATE AMINOTRANSFERASE INCREASED [None]
  - LIVER CARCINOMA RUPTURED [None]
  - NAUSEA [None]
  - BLOOD BILIRUBIN INCREASED [None]
  - ASTHENIA [None]
  - DIARRHOEA [None]
  - WEIGHT DECREASED [None]
  - ALANINE AMINOTRANSFERASE INCREASED [None]
